FAERS Safety Report 7274520-9 (Version None)
Quarter: 2011Q1

REPORT INFORMATION
  Report Type: 
  Country: None (occurrence: None)
  Receive Date: 20110201
  Receipt Date: 20110201
  Transmission Date: 20110831
  Serious: Yes (Life-Threatening)
  Sender: FDA-Public Use
  Company Number: None

PATIENT
  Sex: Male
  Weight: 98 kg

DRUGS (2)
  1. PHYTONADIONE [Suspect]
     Indication: INTERNATIONAL NORMALISED RATIO INCREASED
     Dosage: 10 MG X1 IV
     Route: 042
     Dates: start: 20110122
  2. PROFILNINE [Suspect]
     Indication: RETROPERITONEAL HAEMORRHAGE
     Dosage: 4050 UNITS X1 IVPB
     Dates: start: 20110122

REACTIONS (1)
  - CEREBROVASCULAR ACCIDENT [None]
